FAERS Safety Report 8691322 (Version 2)
Quarter: 2012Q4

REPORT INFORMATION
  Report Type: 
  Country: KR (occurrence: KR)
  Receive Date: 20120730
  Receipt Date: 20121129
  Transmission Date: 20130627
  Serious: Yes (Hospitalization)
  Sender: FDA-Public Use
  Company Number: PHHY2012KR064676

PATIENT
  Age: 71 Year
  Sex: Female

DRUGS (1)
  1. GLIVEC [Suspect]
     Indication: GASTROINTESTINAL STROMAL TUMOUR
     Dosage: 400 mg per day
     Route: 048
     Dates: start: 20120103, end: 20120703

REACTIONS (2)
  - Peritonitis [Recovering/Resolving]
  - Abdominal pain upper [Recovering/Resolving]
